APPROVED DRUG PRODUCT: CETAPRED
Active Ingredient: PREDNISOLONE ACETATE; SULFACETAMIDE SODIUM
Strength: 0.25%;10%
Dosage Form/Route: OINTMENT;OPHTHALMIC
Application: A087771 | Product #001
Applicant: ALCON LABORATORIES INC
Approved: Aug 6, 1993 | RLD: No | RS: No | Type: DISCN